FAERS Safety Report 23800669 (Version 1)
Quarter: 2024Q2

REPORT INFORMATION
  Report Type: Spontaneous
  Country: US (occurrence: None)
  Receive Date: 20240429
  Receipt Date: 20240429
  Transmission Date: 20240716
  Serious: Yes (Other)
  Sender: FDA-Public Use
  Company Number: None

PATIENT
  Age: 86 Year
  Sex: Female

DRUGS (3)
  1. XDEMVY [Suspect]
     Active Substance: LOTILANER
     Indication: Blepharitis
     Dosage: 1 DROP INTO BOTH EYES BID OPHTHALMIC?
     Route: 047
     Dates: start: 20240418
  2. IRON 325MG [Concomitant]
  3. VITAMIN D2 [Concomitant]
     Active Substance: ERGOCALCIFEROL

REACTIONS (3)
  - Peripheral swelling [None]
  - Peripheral swelling [None]
  - Insomnia [None]

NARRATIVE: CASE EVENT DATE: 20240420
